FAERS Safety Report 16899698 (Version 1)
Quarter: 2019Q4

REPORT INFORMATION
  Report Type: Spontaneous
  Country: US (occurrence: US)
  Receive Date: 20191008
  Receipt Date: 20191008
  Transmission Date: 20200122
  Serious: Yes (Disabling)
  Sender: FDA-Public Use
  Company Number: None

PATIENT
  Age: 25 Year
  Sex: Female
  Weight: 58.5 kg

DRUGS (1)
  1. NEXPLANON [Suspect]
     Active Substance: ETONOGESTREL
     Indication: CONTRACEPTION

REACTIONS (9)
  - Anxiety [None]
  - Implantation complication [None]
  - Fatigue [None]
  - Haemorrhage [None]
  - Menorrhagia [None]
  - Mood swings [None]
  - Back pain [None]
  - Depressed mood [None]
  - Depression [None]
